APPROVED DRUG PRODUCT: ESTAZOLAM
Active Ingredient: ESTAZOLAM
Strength: 1MG
Dosage Form/Route: TABLET;ORAL
Application: A074921 | Product #001 | TE Code: AB
Applicant: DR REDDYS LABORATORIES SA
Approved: Jul 10, 1997 | RLD: No | RS: No | Type: RX